FAERS Safety Report 17915156 (Version 2)
Quarter: 2020Q2

REPORT INFORMATION
  Report Type: Spontaneous
  Country: DE (occurrence: DE)
  Receive Date: 20200619
  Receipt Date: 20200625
  Transmission Date: 20200714
  Serious: Yes (Other)
  Sender: FDA-Public Use
  Company Number: DE-BRISTOL-MYERS SQUIBB COMPANY-BMS-2020-046478

PATIENT
  Age: 60 Year
  Sex: Female
  Weight: 87 kg

DRUGS (3)
  1. VERAPAMIL AL [Concomitant]
     Indication: PRODUCT USED FOR UNKNOWN INDICATION
     Dosage: ONCE DAILY
     Route: 065
     Dates: start: 20150612
  2. ELIQUIS [Suspect]
     Active Substance: APIXABAN
     Indication: PRODUCT USED FOR UNKNOWN INDICATION
     Dosage: 2.5 MILLIGRAM, BID
     Route: 065
     Dates: start: 20200608
  3. PREDNISOLON [PREDNISOLONE] [Concomitant]
     Active Substance: PREDNISOLONE
     Indication: PRODUCT USED FOR UNKNOWN INDICATION
     Dosage: 45 MILLIGRAM, DAILY
     Route: 065
     Dates: start: 20200519

REACTIONS (4)
  - Arrhythmia [Unknown]
  - Pollakiuria [Unknown]
  - Colitis [Unknown]
  - Nausea [Unknown]

NARRATIVE: CASE EVENT DATE: 20200609
